FAERS Safety Report 9253308 (Version 1)
Quarter: 2013Q2

REPORT INFORMATION
  Report Type: Spontaneous
  Country: US (occurrence: US)
  Receive Date: 20130424
  Receipt Date: 20130424
  Transmission Date: 20140414
  Serious: Yes (Other)
  Sender: FDA-Public Use
  Company Number: US-MYLANLABS-2013S1008592

PATIENT
  Age: 55 Year
  Sex: Female

DRUGS (6)
  1. LIPOSOMAL DOXORUBICIN HYDROCHLORIDE [Suspect]
     Indication: OVARIAN CANCER RECURRENT
     Route: 065
  2. CARBOPLATIN [Suspect]
     Indication: OVARIAN CANCER RECURRENT
     Route: 065
  3. CISPLATIN [Suspect]
     Indication: OVARIAN CANCER RECURRENT
     Route: 033
  4. BEVACIZUMAB [Suspect]
     Indication: OVARIAN CANCER RECURRENT
     Route: 065
  5. PACLITAXEL [Concomitant]
     Indication: OVARIAN CANCER RECURRENT
     Route: 065
  6. TOPOTECAN [Concomitant]
     Indication: OVARIAN CANCER RECURRENT
     Route: 065

REACTIONS (1)
  - Renal failure chronic [Not Recovered/Not Resolved]
